FAERS Safety Report 11728973 (Version 1)
Quarter: 2015Q4

REPORT INFORMATION
  Report Type: Spontaneous
  Country: US (occurrence: US)
  Receive Date: 20151110
  Receipt Date: 20151110
  Transmission Date: 20160304
  Serious: No
  Sender: FDA-Public Use
  Company Number: US-ELI_LILLY_AND_COMPANY-US201112005088

PATIENT
  Sex: Female

DRUGS (1)
  1. FORTEO [Suspect]
     Active Substance: TERIPARATIDE
     Indication: OSTEOPOROSIS
     Dosage: 20 UG, QD
     Dates: start: 20110916, end: 20111013

REACTIONS (7)
  - Insomnia [Unknown]
  - Adverse drug reaction [Unknown]
  - Headache [Unknown]
  - Asthenia [Unknown]
  - Pain [Unknown]
  - Vision blurred [Unknown]
  - Intentional product misuse [Unknown]
